FAERS Safety Report 6492028-5 (Version None)
Quarter: 2009Q4

REPORT INFORMATION
  Report Type: 
  Country: None (occurrence: None)
  Receive Date: 20091208
  Receipt Date: 20091130
  Transmission Date: 20100525
  Serious: Yes (Other)
  Sender: FDA-Public Use
  Company Number: DSA_41241_2009

PATIENT
  Sex: Female

DRUGS (7)
  1. WELLBUTRIN XL [Suspect]
     Indication: DEPRESSION
     Dosage: (150 MG QD ORAL) ; (75 MG QD ORAL) ; (75 MG QD ORAL) ; (150 MG QD ORAL)
     Route: 048
     Dates: start: 20090427, end: 20090505
  2. WELLBUTRIN XL [Suspect]
     Indication: DEPRESSION
     Dosage: (150 MG QD ORAL) ; (75 MG QD ORAL) ; (75 MG QD ORAL) ; (150 MG QD ORAL)
     Route: 048
     Dates: start: 20090701, end: 20090824
  3. WELLBUTRIN XL [Suspect]
     Indication: DEPRESSION
     Dosage: (150 MG QD ORAL) ; (75 MG QD ORAL) ; (75 MG QD ORAL) ; (150 MG QD ORAL)
     Route: 048
     Dates: start: 20090825, end: 20090925
  4. TEMESTA /00273201/ [Concomitant]
  5. COLECALCIFEROL [Concomitant]
  6. SIMVASTATIN [Concomitant]
  7. OESTRADIOL /00045401/ [Concomitant]

REACTIONS (7)
  - CONFUSIONAL STATE [None]
  - COORDINATION ABNORMAL [None]
  - DISTURBANCE IN ATTENTION [None]
  - MEMORY IMPAIRMENT [None]
  - NIGHTMARE [None]
  - VISION BLURRED [None]
  - VISUAL IMPAIRMENT [None]
